FAERS Safety Report 16784285 (Version 4)
Quarter: 2020Q3

REPORT INFORMATION
  Report Type: Spontaneous
  Country: RU (occurrence: RU)
  Receive Date: 20190909
  Receipt Date: 20200814
  Transmission Date: 20201102
  Serious: Yes (Death, Hospitalization, Other)
  Sender: FDA-Public Use
  Company Number: RU-009507513-1909RUS002014

PATIENT
  Age: 36 Year
  Sex: Male

DRUGS (12)
  1. ZAVICEFTA [Concomitant]
     Active Substance: AVIBACTAM SODIUM\CEFTAZIDIME
     Indication: RENAL ABSCESS
  2. VANCOMYCIN [Concomitant]
     Active Substance: VANCOMYCIN
     Indication: RENAL ABSCESS
  3. VANCOMYCIN [Concomitant]
     Active Substance: VANCOMYCIN
     Indication: PERITONITIS
  4. ZERBAXA [Suspect]
     Active Substance: CEFTOLOZANE SULFATE\TAZOBACTAM SODIUM
     Indication: CALCULUS URINARY
     Dosage: UNKNOWN
  5. ZERBAXA [Suspect]
     Active Substance: CEFTOLOZANE SULFATE\TAZOBACTAM SODIUM
     Indication: PERITONITIS
  6. SIVEXTRO [Suspect]
     Active Substance: TEDIZOLID PHOSPHATE
     Indication: RENAL ABSCESS
  7. SIVEXTRO [Suspect]
     Active Substance: TEDIZOLID PHOSPHATE
     Indication: CALCULUS URINARY
     Dosage: 200 MILLIGRAM
     Route: 048
  8. ZAVICEFTA [Concomitant]
     Active Substance: AVIBACTAM SODIUM\CEFTAZIDIME
     Indication: CALCULUS URINARY
  9. ZAVICEFTA [Concomitant]
     Active Substance: AVIBACTAM SODIUM\CEFTAZIDIME
     Indication: PERITONITIS
  10. SIVEXTRO [Suspect]
     Active Substance: TEDIZOLID PHOSPHATE
     Indication: PERITONITIS
  11. ZERBAXA [Suspect]
     Active Substance: CEFTOLOZANE SULFATE\TAZOBACTAM SODIUM
     Indication: RENAL ABSCESS
  12. VANCOMYCIN [Concomitant]
     Active Substance: VANCOMYCIN
     Indication: CALCULUS URINARY

REACTIONS (5)
  - Hypoglycaemia [Fatal]
  - Renal haemorrhage [Unknown]
  - Hepatic failure [Fatal]
  - Organ failure [Fatal]
  - Renal failure [Unknown]
